FAERS Safety Report 15548874 (Version 1)
Quarter: 2018Q4

REPORT INFORMATION
  Report Type: Spontaneous
  Country: FR (occurrence: FR)
  Receive Date: 20181025
  Receipt Date: 20181025
  Transmission Date: 20190205
  Serious: Yes (Life-Threatening, Hospitalization, Other)
  Sender: FDA-Public Use
  Company Number: FR-TEVA-2018-FR-968575

PATIENT
  Age: 4 Year
  Sex: Male
  Weight: 18 kg

DRUGS (13)
  1. DEBRIDAT ^PARKE-DAVIS^ [Concomitant]
     Dates: start: 20011224
  2. ADVIL [Concomitant]
     Active Substance: IBUPROFEN
     Dates: start: 20011225
  3. EFFERALGAN [Concomitant]
     Active Substance: ACETAMINOPHEN
     Dates: start: 20011225
  4. ERCEFURYL [Concomitant]
     Active Substance: NIFUROXAZIDE
     Dates: start: 20011224
  5. ZADITEN [Suspect]
     Active Substance: KETOTIFEN FUMARATE
     Indication: ECZEMA
     Route: 048
     Dates: start: 20011210, end: 20011217
  6. PRIMPERAN [Concomitant]
     Active Substance: METOCLOPRAMIDE HYDROCHLORIDE
     Dates: start: 20011224
  7. PRO-DAFALGAN [Concomitant]
     Active Substance: PROPACETAMOL HYDROCHLORIDE
     Dates: start: 20011227
  8. NAXY [Suspect]
     Active Substance: CLARITHROMYCIN
     Indication: NASOPHARYNGITIS
     Route: 048
     Dates: start: 20011210, end: 20011217
  9. DOLIPRANE [Suspect]
     Active Substance: ACETAMINOPHEN
     Route: 048
     Dates: start: 20011210, end: 20011217
  10. ISOFRA [Suspect]
     Active Substance: FRAMYCETIN SULFATE
     Indication: NASOPHARYNGITIS
     Route: 045
     Dates: start: 20011210, end: 20011217
  11. BRONCHOKOD [Suspect]
     Active Substance: CARBOCYSTEINE
     Indication: NASOPHARYNGITIS
     Route: 048
     Dates: start: 20011210, end: 20011217
  12. ERYTHROMYCIN. [Concomitant]
     Active Substance: ERYTHROMYCIN
     Dates: start: 20011227, end: 20020116
  13. CLAMOXYL (AMOXICILLIN) [Concomitant]
     Active Substance: AMOXICILLIN
     Dates: start: 20011225

REACTIONS (13)
  - Vomiting [Recovered/Resolved]
  - Pyrexia [Recovered/Resolved]
  - Conjunctivitis [Recovered/Resolved]
  - Hepatocellular injury [Recovered/Resolved]
  - Acute respiratory distress syndrome [Recovered/Resolved]
  - Toxic epidermal necrolysis [Recovered/Resolved]
  - Leukopenia [Recovered/Resolved]
  - Mucosal ulceration [Recovered/Resolved]
  - Rash [Recovered/Resolved]
  - Dermatitis bullous [Recovered/Resolved]
  - Dyspnoea [Recovered/Resolved]
  - Skin exfoliation [Recovered/Resolved]
  - Decreased appetite [Recovered/Resolved]

NARRATIVE: CASE EVENT DATE: 20011223
